FAERS Safety Report 8615475-1 (Version None)
Quarter: 2012Q3

REPORT INFORMATION
  Report Type: 
  Country: None (occurrence: None)
  Receive Date: 20120823
  Receipt Date: 20120815
  Transmission Date: 20120928
  Serious: Yes (Hospitalization, Other)
  Sender: FDA-Public Use
  Company Number: GB-JNJFOC-20120714062

PATIENT
  Sex: Female
  Weight: 77 kg

DRUGS (4)
  1. PALIPERIDONE [Suspect]
     Route: 030
     Dates: start: 20120501
  2. PALIPERIDONE [Suspect]
     Indication: SCHIZOPHRENIA
     Route: 030
  3. FLUOXETINE HCL [Concomitant]
     Indication: DEPRESSION
     Route: 048
  4. PALIPERIDONE [Suspect]
     Route: 030

REACTIONS (3)
  - ANXIETY [None]
  - FATIGUE [None]
  - SUICIDE ATTEMPT [None]
